FAERS Safety Report 9380356 (Version 1)
Quarter: 2013Q3

REPORT INFORMATION
  Report Type: Spontaneous
  Country: FR (occurrence: FR)
  Receive Date: 20130702
  Receipt Date: 20130702
  Transmission Date: 20140515
  Serious: Yes (Hospitalization, Other)
  Sender: FDA-Public Use
  Company Number: FR-BRISTOL-MYERS SQUIBB COMPANY-19055730

PATIENT
  Age: 81 Year
  Sex: Female

DRUGS (2)
  1. COUMADINE [Suspect]
     Route: 048
     Dates: end: 20130310
  2. LOVENOX [Suspect]
     Route: 042

REACTIONS (3)
  - Anaemia [Recovering/Resolving]
  - Haematoma [Recovering/Resolving]
  - Fall [Recovering/Resolving]
